FAERS Safety Report 12764502 (Version 1)
Quarter: 2016Q3

REPORT INFORMATION
  Report Type: Spontaneous
  Country: US (occurrence: US)
  Receive Date: 20160920
  Receipt Date: 20160920
  Transmission Date: 20161109
  Serious: No
  Sender: FDA-Public Use
  Company Number: US-ALLERGAN-1654159US

PATIENT
  Age: 69 Year
  Sex: Male

DRUGS (1)
  1. LASTACAFT [Suspect]
     Active Substance: ALCAFTADINE
     Indication: EYE IRRITATION
     Dosage: 2 GTT, QHS
     Route: 047
     Dates: start: 20160413, end: 20160413

REACTIONS (3)
  - Foreign body sensation in eyes [Recovering/Resolving]
  - Eye irritation [Recovering/Resolving]
  - Eye discharge [Recovering/Resolving]

NARRATIVE: CASE EVENT DATE: 20160414
